FAERS Safety Report 16255734 (Version 1)
Quarter: 2019Q2

REPORT INFORMATION
  Report Type: Spontaneous
  Country: CN (occurrence: CN)
  Receive Date: 20190430
  Receipt Date: 20190430
  Transmission Date: 20190711
  Serious: Yes (Life-Threatening, Hospitalization, Other)
  Sender: FDA-Public Use
  Company Number: CN-BAYER-2019-085883

PATIENT
  Age: 66 Year
  Sex: Female
  Weight: 70 kg

DRUGS (1)
  1. ULTRAVIST [Suspect]
     Active Substance: IOPROMIDE
     Indication: COMPUTERISED TOMOGRAM
     Dosage: 60 ML, ONCE
     Route: 042
     Dates: start: 20190418, end: 20190418

REACTIONS (9)
  - Pruritus generalised [Recovering/Resolving]
  - Hyperhidrosis [Recovering/Resolving]
  - Conjunctival haemorrhage [Recovering/Resolving]
  - Anaphylactic shock [Recovering/Resolving]
  - Flushing [Recovering/Resolving]
  - Loss of consciousness [Recovered/Resolved]
  - Scleral haemorrhage [Recovering/Resolving]
  - Hypoaesthesia oral [Recovering/Resolving]
  - Cold sweat [Recovering/Resolving]

NARRATIVE: CASE EVENT DATE: 20190418
